FAERS Safety Report 8710890 (Version 2)
Quarter: 2012Q4

REPORT INFORMATION
  Report Type: 
  Country: FI (occurrence: FI)
  Receive Date: 20120807
  Receipt Date: 20120911
  Transmission Date: 20130627
  Serious: Yes (Other)
  Sender: FDA-Public Use
  Company Number: PHHY2012FI067114

PATIENT
  Age: 59 Year
  Sex: Female

DRUGS (9)
  1. ZOLEDRONIC ACID [Suspect]
     Dosage: 4 mg I.V. once a month for 6 months
  2. ALENDRONATE [Suspect]
     Indication: OSTEOPOROSIS
     Dosage: 10 mg/day
  3. DEXAMETHASONE [Suspect]
     Indication: MULTIPLE MYELOMA
     Dosage: 40 mg/day given on days 1-4, 9-12, and 17-20 of a 28-day cycle, altogether received seven cycles
  4. DEXAMETHASONE [Suspect]
     Dosage: 20 mg/day
  5. THALIDOMIDE [Concomitant]
     Indication: MULTIPLE MYELOMA
     Dosage: 100 mg/day- last three cycles
  6. BORTEZOMIB [Concomitant]
     Indication: MULTIPLE MYELOMA
     Dosage: 20 mg daily
  7. MELPHALAN [Concomitant]
     Indication: MULTIPLE MYELOMA
     Dosage: 200 mg/m2, UNK
  8. CLODRONATE DISODIUM [Concomitant]
     Indication: MULTIPLE MYELOMA
     Dosage: 1600 mg/day
  9. ANALGESICS [Concomitant]
     Indication: ORAL PAIN

REACTIONS (5)
  - Osteonecrosis of jaw [Unknown]
  - Oral pain [Recovered/Resolved]
  - Oral cavity fistula [Unknown]
  - Impaired healing [Unknown]
  - Oral disorder [Unknown]
